FAERS Safety Report 6276738-0 (Version None)
Quarter: 2009Q3

REPORT INFORMATION
  Report Type: 
  Country: None (occurrence: None)
  Receive Date: 20090722
  Receipt Date: 20080804
  Transmission Date: 20100115
  Serious: No
  Sender: FDA-Public Use
  Company Number: US-BRISTOL-MYERS SQUIBB COMPANY-14287833

PATIENT
  Age: 75 Year
  Sex: Female
  Weight: 116 kg

DRUGS (3)
  1. WARFARIN SODIUM [Suspect]
     Indication: PULMONARY THROMBOSIS
     Dosage: 1 DOSAGE FORM=1 TAB;INCREASED TO 1 1/2 TAB FOR NEXT THREE WEEKS.
     Dates: start: 20050101
  2. DARVOCET [Concomitant]
  3. HYDROCHLOROTHIAZIDE [Concomitant]

REACTIONS (1)
  - BLOOD VISCOSITY INCREASED [None]
